FAERS Safety Report 6155925-6 (Version None)
Quarter: 2009Q2

REPORT INFORMATION
  Report Type: 
  Country: None (occurrence: None)
  Receive Date: 20090415
  Receipt Date: 20090401
  Transmission Date: 20091009
  Serious: Yes (Other)
  Sender: FDA-Public Use
  Company Number: US-ROCHE-625829

PATIENT
  Age: 37 Year
  Sex: Male

DRUGS (15)
  1. SAQUINAVIR [Suspect]
     Indication: ANTIRETROVIRAL THERAPY
     Route: 065
  2. SAQUINAVIR [Suspect]
     Dosage: RE-INTRODUCTION
     Route: 065
  3. LOPINAVIR [Suspect]
     Indication: ANTIRETROVIRAL THERAPY
     Route: 065
  4. LOPINAVIR [Suspect]
     Dosage: RE-INTRODUCED
     Route: 065
  5. ATAZANAVIR SULFATE [Suspect]
     Indication: ANTIRETROVIRAL THERAPY
     Route: 065
  6. ATAZANAVIR SULFATE [Suspect]
     Dosage: RE-INTRODUCED
     Route: 065
  7. RITONAVIR [Suspect]
     Indication: ANTIRETROVIRAL THERAPY
     Route: 065
  8. RITONAVIR [Suspect]
     Dosage: RE-INTRODUCED
     Route: 065
  9. TENOFOVIR [Suspect]
     Indication: ANTIRETROVIRAL THERAPY
     Dosage: DRUG NAME: TENOFOVIR FUMARATE
     Route: 065
  10. TENOFOVIR [Suspect]
     Dosage: RE-INTRODUCED
     Route: 065
  11. STAVUDINE [Suspect]
     Indication: ANTIRETROVIRAL THERAPY
     Route: 065
  12. STAVUDINE [Suspect]
     Dosage: RE-INTRODUCED
     Route: 065
  13. DIDANOSINE [Suspect]
     Indication: ANTIRETROVIRAL THERAPY
     Route: 065
  14. DIDANOSINE [Suspect]
     Dosage: RE-INTRODUCED
     Route: 065
  15. EMTRICITABINE [Suspect]
     Indication: ANTIRETROVIRAL THERAPY
     Route: 065

REACTIONS (2)
  - HEPATIC STEATOSIS [None]
  - HEPATOTOXICITY [None]
